FAERS Safety Report 6258376-9 (Version None)
Quarter: 2009Q3

REPORT INFORMATION
  Report Type: 
  Country: None (occurrence: None)
  Receive Date: 20090702
  Receipt Date: 20090702
  Transmission Date: 20100115
  Serious: Yes (Other)
  Sender: FDA-Public Use
  Company Number: None

PATIENT
  Sex: Female
  Weight: 83.9154 kg

DRUGS (2)
  1. BENZONATATE [Suspect]
     Indication: COUGH
     Dosage: PO
     Route: 048
     Dates: start: 20090627, end: 20090629
  2. NYQUIL [Suspect]
     Dosage: PO
     Route: 048

REACTIONS (3)
  - FLAT AFFECT [None]
  - PSYCHOMOTOR RETARDATION [None]
  - VISUAL IMPAIRMENT [None]
